FAERS Safety Report 15882588 (Version 4)
Quarter: 2019Q1

REPORT INFORMATION
  Report Type: Spontaneous
  Country: US (occurrence: US)
  Receive Date: 20190129
  Receipt Date: 20190206
  Transmission Date: 20190417
  Serious: Yes (Other)
  Sender: FDA-Public Use
  Company Number: US-ALEXION PHARMACEUTICALS INC.-A201901294

PATIENT
  Age: 50 Year
  Sex: Female
  Weight: 68.5 kg

DRUGS (1)
  1. STRENSIQ [Suspect]
     Active Substance: ASFOTASE ALFA
     Indication: HYPOPHOSPHATASIA
     Dosage: 0.69 ML, 6 DAYS PER WEEK
     Route: 058
     Dates: start: 20190112, end: 20190123

REACTIONS (6)
  - Visual impairment [Recovering/Resolving]
  - Syncope [Recovered/Resolved]
  - Tinnitus [Recovering/Resolving]
  - Nausea [Recovering/Resolving]
  - Vomiting [Recovering/Resolving]
  - Injection related reaction [Recovering/Resolving]

NARRATIVE: CASE EVENT DATE: 20190123
